FAERS Safety Report 21404141 (Version 1)
Quarter: 2022Q4

REPORT INFORMATION
  Report Type: Spontaneous
  Country: DE (occurrence: DE)
  Receive Date: 20221003
  Receipt Date: 20221003
  Transmission Date: 20230113
  Serious: Yes (Life-Threatening, Hospitalization, Other)
  Sender: FDA-Public Use
  Company Number: DE-ADRED-07763-01

PATIENT
  Age: 51 Year
  Sex: Female
  Weight: 60 kg

DRUGS (12)
  1. PIPERACILLIN SODIUM\TAZOBACTAM SODIUM [Suspect]
     Active Substance: PIPERACILLIN SODIUM\TAZOBACTAM SODIUM
     Indication: Product used for unknown indication
     Dosage: NK?ROA-20045000
     Route: 042
  2. NALOXONE HYDROCHLORIDE\TILIDINE HYDROCHLORIDE [Suspect]
     Active Substance: NALOXONE HYDROCHLORIDE\TILIDINE HYDROCHLORIDE
     Indication: Product used for unknown indication
     Dosage: 4|50 MG, 2-0-2-0, PROLONGED RELEASE TABLET?PDF-10226000?ROA-20053000
     Route: 048
  3. MOVICOL [Concomitant]
     Active Substance: POLYETHYLENE GLYCOL 3350\POTASSIUM CHLORIDE\SODIUM BICARBONATE\SODIUM CHLORIDE
     Indication: Product used for unknown indication
     Dosage: AS NEEDED, POWDER?ROA-20053000
     Route: 048
  4. ACETAMINOPHEN [Concomitant]
     Active Substance: ACETAMINOPHEN
     Indication: Product used for unknown indication
     Dosage: 500 MG, 1-1-1-1, TABLET?PDF-10219000?ROA-20053000
     Route: 048
  5. ESOMEPRAZOLE [Concomitant]
     Active Substance: ESOMEPRAZOLE
     Indication: Product used for unknown indication
     Dosage: 40 MG, 1-0-1-0, CAPSULE?PFT-12100?ROA-20053000
     Route: 048
  6. Rekawan retard 600mg [Concomitant]
     Indication: Product used for unknown indication
     Dosage: 2-2-2-2, PROLONGED RELEASE CAPSULE?PFT-12150?ROA-20053000
  7. MIRTAZAPINE [Concomitant]
     Active Substance: MIRTAZAPINE
     Indication: Product used for unknown indication
     Dosage: 15 MG, 0-0-0-0.5, TABLET?PDF-10219000?ROA-20053000
     Route: 048
  8. Sab simplex Suspension zum Einnehmen [Concomitant]
     Indication: Product used for unknown indication
     Dosage: 15-15-15-0, SUSPENSION?ROA-20053000
     Route: 048
  9. Acetylsalicyls?re [Concomitant]
     Indication: Product used for unknown indication
     Dosage: 100 MG, 1-0-0-0, TABLET?PDF-10219000?ROA-20053000
     Route: 048
  10. METOCLOPRAMIDE [Concomitant]
     Active Substance: METOCLOPRAMIDE
     Indication: Product used for unknown indication
     Dosage: 10 MG, 1-1-1-0, TABLET?PDF-10219000?ROA-20053000
     Route: 048
  11. RIOPAN MAGEN GEL [Concomitant]
     Indication: Product used for unknown indication
     Dosage: 1-1-1-1, SUSPENSION?ROA-20053000
     Route: 048
  12. Fresubin 2kcal fibre DRINK Schokolade [Concomitant]
     Indication: Product used for unknown indication
     Dosage: 1-1-1-0?ROA-20053000
     Route: 048

REACTIONS (3)
  - Disturbance in attention [None]
  - Sepsis [None]
  - Depressed level of consciousness [None]

NARRATIVE: CASE EVENT DATE: 20210319
